FAERS Safety Report 9049468 (Version 1)
Quarter: 2013Q1

REPORT INFORMATION
  Report Type: Spontaneous
  Country: US (occurrence: US)
  Receive Date: 20130205
  Receipt Date: 20130205
  Transmission Date: 20140127
  Serious: Yes (Death)
  Sender: FDA-Public Use
  Company Number: US-GLAXOSMITHKLINE-A1010823A

PATIENT
  Age: 60 Year
  Sex: Female

DRUGS (4)
  1. VOTRIENT [Suspect]
     Indication: BREAST CANCER
     Dosage: 200MG PER DAY
     Route: 048
     Dates: start: 20121029, end: 20130128
  2. HYDROCODONE BITARTRATE [Concomitant]
  3. DIGOXIN [Concomitant]
  4. RAPAMUNE [Concomitant]

REACTIONS (1)
  - Death [Fatal]
